FAERS Safety Report 6648703-2 (Version None)
Quarter: 2010Q1

REPORT INFORMATION
  Report Type: 
  Country: None (occurrence: None)
  Receive Date: 20100324
  Receipt Date: 20100312
  Transmission Date: 20100710
  Serious: Yes (Other)
  Sender: FDA-Public Use
  Company Number: DK-PFIZER INC-2010032162

PATIENT
  Age: 43 Year
  Sex: Female

DRUGS (1)
  1. ZELDOX [Suspect]
     Dosage: 60 MG, 2X/DAY

REACTIONS (1)
  - MUSCLE SPASMS [None]
